FAERS Safety Report 7204327-X (Version None)
Quarter: 2010Q4

REPORT INFORMATION
  Report Type: 
  Country: None (occurrence: None)
  Receive Date: 20101230
  Receipt Date: 20101220
  Transmission Date: 20110411
  Serious: Yes (Other)
  Sender: FDA-Public Use
  Company Number: US-ROCHE-750579

PATIENT

DRUGS (1)
  1. AVASTIN [Suspect]
     Route: 031

REACTIONS (1)
  - INTRAOCULAR PRESSURE INCREASED [None]
